FAERS Safety Report 14366141 (Version 5)
Quarter: 2019Q1

REPORT INFORMATION
  Report Type: Spontaneous
  Country: US (occurrence: US)
  Receive Date: 20180109
  Receipt Date: 20190130
  Transmission Date: 20190417
  Serious: Yes (Other)
  Sender: FDA-Public Use
  Company Number: US-AMGEN-USASP2018001653

PATIENT
  Age: 69 Year
  Sex: Female
  Weight: 69.84 kg

DRUGS (11)
  1. METOPROLOL. [Concomitant]
     Active Substance: METOPROLOL
     Indication: HYPERTENSION
     Dosage: UNK
     Route: 065
  2. METOPROLOL. [Concomitant]
     Active Substance: METOPROLOL
     Indication: PROPHYLAXIS
  3. ENBREL [Suspect]
     Active Substance: ETANERCEPT
     Indication: RHEUMATOID ARTHRITIS
     Dosage: 50 MG, QWK
     Route: 058
     Dates: start: 20100318, end: 20151102
  4. LOSARTAN. [Concomitant]
     Active Substance: LOSARTAN
     Indication: MIGRAINE
  5. ULTRAM [Concomitant]
     Active Substance: TRAMADOL HYDROCHLORIDE
     Indication: HEADACHE
     Dosage: UNK
     Route: 065
  6. METOPROLOL. [Concomitant]
     Active Substance: METOPROLOL
     Indication: CARDIAC DISORDER
  7. METOPROLOL. [Concomitant]
     Active Substance: METOPROLOL
     Indication: MIGRAINE
  8. LOSARTAN. [Concomitant]
     Active Substance: LOSARTAN
     Indication: CARDIAC DISORDER
  9. ULTRAM [Concomitant]
     Active Substance: TRAMADOL HYDROCHLORIDE
     Indication: RHEUMATOID ARTHRITIS
  10. LOSARTAN. [Concomitant]
     Active Substance: LOSARTAN
     Indication: HYPERTENSION
     Dosage: UNK
     Route: 065
  11. LOSARTAN. [Concomitant]
     Active Substance: LOSARTAN
     Indication: PROPHYLAXIS

REACTIONS (18)
  - Amnesia [Recovering/Resolving]
  - Dizziness [Recovering/Resolving]
  - Fatigue [Recovering/Resolving]
  - Hypertension [Recovering/Resolving]
  - Vision blurred [Unknown]
  - Headache [Recovered/Resolved]
  - Cardiac disorder [Recovering/Resolving]
  - White matter lesion [Recovering/Resolving]
  - Tremor [Recovering/Resolving]
  - Cerebral atrophy [Recovering/Resolving]
  - Drug hypersensitivity [Unknown]
  - Migraine [Recovering/Resolving]
  - Cerebral ischaemia [Recovering/Resolving]
  - Rheumatoid arthritis [Recovering/Resolving]
  - Vertigo [Recovered/Resolved]
  - Spinal osteoarthritis [Recovering/Resolving]
  - Gastrointestinal disorder [Recovering/Resolving]
  - Hiatus hernia [Unknown]

NARRATIVE: CASE EVENT DATE: 20150811
